FAERS Safety Report 16786755 (Version 1)
Quarter: 2019Q3

REPORT INFORMATION
  Report Type: Spontaneous
  Country: IR (occurrence: IR)
  Receive Date: 20190909
  Receipt Date: 20190909
  Transmission Date: 20191005
  Serious: Yes (Hospitalization, Other)
  Sender: FDA-Public Use
  Company Number: IR-HARRIS PHARMACEUTICAL-2019HAR00020

PATIENT
  Age: 31 Year
  Sex: Female

DRUGS (1)
  1. FLUCONAZOLE. [Suspect]
     Active Substance: FLUCONAZOLE
     Indication: ORAL CANDIDIASIS
     Dosage: 150 MG, 1X/DAY
     Route: 048
     Dates: start: 2009

REACTIONS (7)
  - Aspergillus infection [Recovered/Resolved]
  - Soft tissue necrosis [Recovered/Resolved]
  - Stevens-Johnson syndrome [Recovered/Resolved]
  - Osteonecrosis [Recovered/Resolved]
  - Deafness [Recovered/Resolved]
  - Ear infection fungal [Recovered/Resolved]
  - Myringitis [Recovered/Resolved]

NARRATIVE: CASE EVENT DATE: 20180905
